FAERS Safety Report 7419613-8 (Version None)
Quarter: 2011Q1

REPORT INFORMATION
  Report Type: 
  Country: None (occurrence: None)
  Receive Date: 20110302
  Receipt Date: 20101108
  Transmission Date: 20110831
  Serious: No
  Sender: FDA-Public Use
  Company Number: 019886

PATIENT
  Sex: Female

DRUGS (1)
  1. CIMZIA [Suspect]
     Indication: CROHN'S DISEASE
     Dosage: (SUBCUTANEOUS)
     Route: 058
     Dates: start: 20100820, end: 20101027

REACTIONS (5)
  - PYREXIA [None]
  - HYPERHIDROSIS [None]
  - MUSCLE SPASMS [None]
  - DRUG INEFFECTIVE [None]
  - CHILLS [None]
